FAERS Safety Report 7626749-5 (Version None)
Quarter: 2011Q3

REPORT INFORMATION
  Report Type: 
  Country: None (occurrence: None)
  Receive Date: 20110714
  Receipt Date: 20110616
  Transmission Date: 20111222
  Serious: Yes (Other)
  Sender: FDA-Public Use
  Company Number: JPI-P-015826

PATIENT
  Age: 70 Year
  Sex: Female
  Weight: 97.5234 kg

DRUGS (6)
  1. XYREM [Suspect]
     Indication: SLEEP DISORDER
     Dosage: , ORAL, 6 GM (3 GM,2 IN 1 D),ORAL
     Route: 048
     Dates: start: 20050601
  2. UNSPECIFIED BLOOD PRESSURE MEDICATIONS [Concomitant]
  3. LEVOTHYROXINE SODIUM [Concomitant]
  4. UNSPECIFIED ACID REFLUX MEDICATION [Concomitant]
  5. UNSPECIFIED ACID [Concomitant]
  6. MODAFINIL [Concomitant]

REACTIONS (3)
  - SPINAL COMPRESSION FRACTURE [None]
  - NERVE COMPRESSION [None]
  - INTERVERTEBRAL DISC PROTRUSION [None]
